FAERS Safety Report 17878308 (Version 1)
Quarter: 2020Q2

REPORT INFORMATION
  Report Type: Spontaneous
  Country: CH (occurrence: CH)
  Receive Date: 20200610
  Receipt Date: 20200610
  Transmission Date: 20200714
  Serious: Yes (Hospitalization, Other)
  Sender: FDA-Public Use
  Company Number: CH-REGENERON PHARMACEUTICALS, INC.-2020-41723

PATIENT

DRUGS (6)
  1. SORTIS [Concomitant]
     Active Substance: ATORVASTATIN
     Indication: PRODUCT USED FOR UNKNOWN INDICATION
  2. RETINOL [Concomitant]
     Active Substance: RETINOL
     Indication: PRODUCT USED FOR UNKNOWN INDICATION
  3. OMEZOL [OMEPRAZOLE] [Concomitant]
     Indication: PRODUCT USED FOR UNKNOWN INDICATION
  4. PLAVIX [Concomitant]
     Active Substance: CLOPIDOGREL BISULFATE
     Indication: PRODUCT USED FOR UNKNOWN INDICATION
  5. EYLEA [Suspect]
     Active Substance: AFLIBERCEPT
     Indication: AGE-RELATED MACULAR DEGENERATION
     Dosage: UNK, ONCE, INJECTION
     Dates: start: 20200504, end: 20200504
  6. VITAMIN D [VITAMIN D NOS] [Concomitant]
     Active Substance: VITAMIN D NOS
     Indication: PRODUCT USED FOR UNKNOWN INDICATION

REACTIONS (2)
  - Hemiplegia [Unknown]
  - Transient ischaemic attack [Unknown]
